FAERS Safety Report 21375802 (Version 1)
Quarter: 2022Q3

REPORT INFORMATION
  Report Type: Spontaneous
  Country: ES (occurrence: ES)
  Receive Date: 20220926
  Receipt Date: 20220926
  Transmission Date: 20221026
  Serious: Yes (Life-Threatening, Hospitalization)
  Sender: FDA-Public Use
  Company Number: ES-Atnahs Limited-ATNAHS20220908227

PATIENT
  Age: 3 Month
  Sex: Male

DRUGS (1)
  1. DIAZEPAM [Suspect]
     Active Substance: DIAZEPAM
     Indication: Seizure
     Dosage: ; IN TOTAL
     Route: 050
     Dates: start: 20220210

REACTIONS (3)
  - Cyanosis [Recovered/Resolved]
  - Incorrect drug administration rate [Recovered/Resolved]
  - Hypoxia [Recovered/Resolved]

NARRATIVE: CASE EVENT DATE: 20220210
